FAERS Safety Report 17746283 (Version 2)
Quarter: 2020Q3

REPORT INFORMATION
  Report Type: Spontaneous
  Country: US (occurrence: US)
  Receive Date: 20200505
  Receipt Date: 20200714
  Transmission Date: 20201102
  Serious: Yes (Other)
  Sender: FDA-Public Use
  Company Number: US-BAYER-2020-057983

PATIENT
  Age: 58 Year
  Sex: Female

DRUGS (5)
  1. TAMIFLU [Concomitant]
     Active Substance: OSELTAMIVIR PHOSPHATE
     Indication: INFLUENZA
     Route: 065
  2. ALEVE [Suspect]
     Active Substance: NAPROXEN SODIUM
     Indication: PAIN
  3. HUMIRA [Concomitant]
     Active Substance: ADALIMUMAB
     Indication: RHEUMATOID ARTHRITIS
     Dosage: 40 MG
     Route: 058
     Dates: start: 202001, end: 2020
  4. HUMIRA [Concomitant]
     Active Substance: ADALIMUMAB
     Indication: RHEUMATOID ARTHRITIS
     Dosage: 40 MG 1 IN 2 2
     Route: 058
     Dates: start: 20190920, end: 202001
  5. HUMIRA [Concomitant]
     Active Substance: ADALIMUMAB
     Indication: RHEUMATOID ARTHRITIS
     Dosage: 40 MG
     Route: 058
     Dates: start: 202003

REACTIONS (25)
  - Depression [Not Recovered/Not Resolved]
  - Joint stiffness [Not Recovered/Not Resolved]
  - Osteoporosis [Unknown]
  - Tobacco user [Unknown]
  - Gastrointestinal disorder [Unknown]
  - Hepatic enzyme increased [Unknown]
  - Dyspnoea [Not Recovered/Not Resolved]
  - Renal impairment [Unknown]
  - Joint injury [Unknown]
  - Depression [Not Recovered/Not Resolved]
  - Intentional product misuse [Unknown]
  - Influenza [Unknown]
  - Respiratory tract congestion [Unknown]
  - Gait disturbance [Not Recovered/Not Resolved]
  - Adverse drug reaction [Unknown]
  - Arthralgia [Recovered/Resolved]
  - Pain [Not Recovered/Not Resolved]
  - Allergic cough [Unknown]
  - Osteopenia [Unknown]
  - Paraesthesia [Not Recovered/Not Resolved]
  - Hypoaesthesia [Not Recovered/Not Resolved]
  - Arthritis [Unknown]
  - Fall [Unknown]
  - Arthralgia [Unknown]
  - Joint effusion [Unknown]

NARRATIVE: CASE EVENT DATE: 2019
